FAERS Safety Report 25261052 (Version 6)
Quarter: 2025Q3

REPORT INFORMATION
  Report Type: Spontaneous
  Country: EU (occurrence: EU)
  Receive Date: 20250501
  Receipt Date: 20250710
  Transmission Date: 20251020
  Serious: Yes (Hospitalization)
  Sender: PFIZER
  Company Number: EU-PFIZER INC-PV202500051814

PATIENT
  Age: 65 Year
  Sex: Female

DRUGS (2)
  1. CRIZOTINIB [Suspect]
     Active Substance: CRIZOTINIB
     Indication: Lung neoplasm malignant
  2. CRIZOTINIB [Suspect]
     Active Substance: CRIZOTINIB
     Indication: Bronchial carcinoma

REACTIONS (5)
  - Dyspnoea exertional [Unknown]
  - Dyspepsia [Unknown]
  - Constipation [Unknown]
  - Vision blurred [Recovering/Resolving]
  - Anxiety [Not Recovered/Not Resolved]
